FAERS Safety Report 12920929 (Version 1)
Quarter: 2016Q4

REPORT INFORMATION
  Report Type: Spontaneous
  Country: US (occurrence: US)
  Receive Date: 20161107
  Receipt Date: 20161107
  Transmission Date: 20170207
  Serious: Yes (Hospitalization)
  Sender: FDA-Public Use
  Company Number: None

PATIENT
  Age: 67 Year
  Sex: Male
  Weight: 113.3 kg

DRUGS (2)
  1. AMOXICILLIN/CLAVULANATE [Suspect]
     Active Substance: AMOXICILLIN\CLAVULANATE POTASSIUM
     Indication: INFECTION
     Dosage: 875/125 MG BID PO
     Route: 048
     Dates: start: 20161005, end: 20161009
  2. AMOXICILLIN/CLAVULANATE [Suspect]
     Active Substance: AMOXICILLIN\CLAVULANATE POTASSIUM
     Indication: URINARY TRACT INFECTION
     Dosage: 875/125 MG BID PO
     Route: 048
     Dates: start: 20161005, end: 20161009

REACTIONS (6)
  - Acute kidney injury [None]
  - Nausea [None]
  - Vomiting [None]
  - Blood urea increased [None]
  - Blood creatinine increased [None]
  - Diarrhoea [None]

NARRATIVE: CASE EVENT DATE: 20161025
